FAERS Safety Report 17761508 (Version 1)
Quarter: 2020Q2

REPORT INFORMATION
  Report Type: Spontaneous
  Country: CZ (occurrence: CZ)
  Receive Date: 20200508
  Receipt Date: 20200508
  Transmission Date: 20200714
  Serious: Yes (Hospitalization, Other)
  Sender: FDA-Public Use
  Company Number: CZ-MYLANLABS-2020M1045062

PATIENT
  Age: 73 Year
  Sex: Female

DRUGS (2)
  1. NYSTATIN. [Concomitant]
     Active Substance: NYSTATIN
     Indication: CANDIDA INFECTION
     Dosage: UNK
     Route: 065
  2. METHOTREXATE. [Suspect]
     Active Substance: METHOTREXATE
     Indication: RHEUMATOID ARTHRITIS
     Dosage: 10 MILLIGRAM, QW, 10 MG, QW
     Route: 065

REACTIONS (8)
  - Acute kidney injury [Unknown]
  - Pruritus [Recovered/Resolved]
  - Epstein-Barr virus infection [Recovered/Resolved]
  - Mucocutaneous ulceration [Recovered/Resolved]
  - Pancytopenia [Unknown]
  - Decreased appetite [Recovered/Resolved]
  - Dehydration [Unknown]
  - Pain [Recovered/Resolved]

NARRATIVE: CASE EVENT DATE: 2019
